FAERS Safety Report 9429202 (Version 1)
Quarter: 2013Q3

REPORT INFORMATION
  Report Type: Spontaneous
  Country: US (occurrence: US)
  Receive Date: 20130730
  Receipt Date: 20130730
  Transmission Date: 20140515
  Serious: Yes (Hospitalization)
  Sender: FDA-Public Use
  Company Number: US-ASTRAZENECA-2013SE56036

PATIENT
  Age: 74 Year
  Sex: Male

DRUGS (2)
  1. BRILINTA [Suspect]
     Indication: ACUTE CORONARY SYNDROME
     Dosage: 180 MG, LOADED ONCE
     Route: 048
  2. BRILINTA [Suspect]
     Indication: STENT PLACEMENT
     Dosage: 180 MG, LOADED ONCE
     Route: 048

REACTIONS (1)
  - Gastrointestinal haemorrhage [Unknown]
